FAERS Safety Report 22108246 (Version 1)
Quarter: 2023Q1

REPORT INFORMATION
  Report Type: Spontaneous
  Country: JP (occurrence: JP)
  Receive Date: 20230317
  Receipt Date: 20230317
  Transmission Date: 20230418
  Serious: Yes (Other)
  Sender: FDA-Public Use
  Company Number: JP-MYLANLABS-2023M1025024

PATIENT
  Sex: Female

DRUGS (2)
  1. LYRICA [Suspect]
     Active Substance: PREGABALIN
     Indication: Product used for unknown indication
     Dosage: UNK
     Route: 048
  2. LYRICA [Suspect]
     Active Substance: PREGABALIN
     Dosage: TOOK A LARGE AMOUNT IN THE EVENING (ABOUT 200 TABLETS)
     Route: 048
     Dates: start: 20230306

REACTIONS (5)
  - Suicidal ideation [Unknown]
  - Dizziness [Unknown]
  - Gait inability [Unknown]
  - Dysstasia [Unknown]
  - Intentional overdose [Unknown]

NARRATIVE: CASE EVENT DATE: 20230306
